FAERS Safety Report 5867019-5 (Version None)
Quarter: 2008Q3

REPORT INFORMATION
  Report Type: 
  Country: None (occurrence: None)
  Receive Date: 20080902
  Receipt Date: 20080821
  Transmission Date: 20090109
  Serious: Yes (Other)
  Sender: FDA-Public Use
  Company Number: A0745276A

PATIENT
  Age: 67 Year
  Sex: Female
  Weight: 77.3 kg

DRUGS (3)
  1. AVANDIA [Suspect]
     Dosage: 2MG PER DAY
     Route: 048
     Dates: start: 20061001, end: 20070301
  2. AVANDAMET [Suspect]
     Dosage: 2MG PER DAY
     Route: 048
     Dates: start: 20070301, end: 20080401
  3. GLUCOPHAGE [Concomitant]
     Dates: start: 19900101, end: 20080501

REACTIONS (1)
  - CEREBROVASCULAR ACCIDENT [None]
